FAERS Safety Report 13399704 (Version 1)
Quarter: 2017Q2

REPORT INFORMATION
  Report Type: Spontaneous
  Country: AT (occurrence: AT)
  Receive Date: 20170404
  Receipt Date: 20170404
  Transmission Date: 20170830
  Serious: Yes (Other)
  Sender: FDA-Public Use
  Company Number: AT-ACCORD-049876

PATIENT
  Age: 66 Year
  Sex: Female

DRUGS (2)
  1. FLUOROURACIL. [Suspect]
     Active Substance: FLUOROURACIL
     Indication: ANAL SQUAMOUS CELL CARCINOMA
  2. CISPLATIN. [Suspect]
     Active Substance: CISPLATIN
     Indication: ANAL SQUAMOUS CELL CARCINOMA

REACTIONS (4)
  - Decreased appetite [Recovering/Resolving]
  - Off label use [Unknown]
  - Refeeding syndrome [Recovering/Resolving]
  - Gingivitis [Recovering/Resolving]
